FAERS Safety Report 16078303 (Version 3)
Quarter: 2019Q3

REPORT INFORMATION
  Report Type: Spontaneous
  Country: US (occurrence: US)
  Receive Date: 20190315
  Receipt Date: 20190819
  Transmission Date: 20191004
  Serious: No
  Sender: FDA-Public Use
  Company Number: US-SA-2019SA070132

PATIENT
  Age: 59 Year
  Sex: Female

DRUGS (1)
  1. KEVZARA [Suspect]
     Active Substance: SARILUMAB
     Indication: POLYARTHRITIS
     Dosage: UNK
     Dates: start: 201901

REACTIONS (6)
  - Product use in unapproved indication [Unknown]
  - Nasal congestion [Unknown]
  - Cough [Unknown]
  - Oropharyngeal pain [Unknown]
  - Stomatitis [Unknown]
  - Pain [Unknown]

NARRATIVE: CASE EVENT DATE: 2019
